FAERS Safety Report 10992357 (Version 3)
Quarter: 2015Q3

REPORT INFORMATION
  Report Type: Report from Study
  Country: FR (occurrence: FR)
  Receive Date: 20150406
  Receipt Date: 20150702
  Transmission Date: 20151125
  Serious: Yes (Hospitalization, Other)
  Sender: FDA-Public Use
  Company Number: PHHY2015FR014984

PATIENT
  Age: 30 Year
  Sex: Male

DRUGS (5)
  1. COLCHICINE. [Suspect]
     Active Substance: COLCHICINE
     Indication: PERICARDIAL EFFUSION
     Dosage: 0.5 MG, QD
     Route: 048
     Dates: start: 20150220
  2. LDK378 [Suspect]
     Active Substance: CERITINIB
     Indication: NON-SMALL CELL LUNG CANCER STAGE IIIB
     Dosage: UNK, QD
     Route: 048
     Dates: start: 20150107, end: 20150303
  3. INEXIUM//ESOMEPRAZOLE SODIUM [Suspect]
     Active Substance: ESOMEPRAZOLE
     Indication: PRODUCT USED FOR UNKNOWN INDICATION
     Dosage: 40 MG, QD
     Route: 048
     Dates: start: 20150226
  4. LDK378 [Suspect]
     Active Substance: CERITINIB
     Indication: INFLAMMATORY MYOFIBROBLASTIC TUMOUR
     Dosage: 600 MG, QD
     Route: 048
     Dates: start: 20141008, end: 20141017
  5. LDK378 [Suspect]
     Active Substance: CERITINIB
     Indication: FIBROSARCOMA
     Dosage: 450 MG, QD
     Route: 048
     Dates: start: 20141106, end: 20141217

REACTIONS (4)
  - Hepatocellular injury [Recovered/Resolved]
  - Pericardial effusion [Recovered/Resolved]
  - Blood creatinine increased [Recovered/Resolved]
  - Hepatocellular injury [Recovered/Resolved]

NARRATIVE: CASE EVENT DATE: 201410
